FAERS Safety Report 12309832 (Version 3)
Quarter: 2016Q2

REPORT INFORMATION
  Report Type: Report from Study
  Country: US (occurrence: US)
  Receive Date: 20160427
  Receipt Date: 20160607
  Transmission Date: 20160815
  Serious: No
  Sender: FDA-Public Use
  Company Number: US-MDT-ADR-2016-00747

PATIENT
  Age: 58 Year
  Sex: Male

DRUGS (10)
  1. OXYCODONE [Concomitant]
     Active Substance: OXYCODONE
  2. CLONIDINE. [Suspect]
     Active Substance: CLONIDINE
     Dosage: 74.912 MCG/DAY
     Route: 037
     Dates: end: 20160316
  3. COMPOUNDED BACLOFEN [Suspect]
     Active Substance: BACLOFEN
     Dosage: 125.01 MCG/DAY
     Route: 037
     Dates: start: 20160316
  4. DILAUDID [Suspect]
     Active Substance: HYDROMORPHONE HYDROCHLORIDE
     Dosage: 1.2501 MG/DAY
     Route: 037
     Dates: start: 20160316
  5. DILAUDID [Suspect]
     Active Substance: HYDROMORPHONE HYDROCHLORIDE
     Dosage: 1.4982 MG/DAY
     Route: 037
     Dates: end: 20160316
  6. COMPOUNDED BACLOFEN [Suspect]
     Active Substance: BACLOFEN
     Dosage: 149.82 MCG/DAY
     Route: 037
     Dates: end: 20160316
  7. OXYCONTIN [Concomitant]
     Active Substance: OXYCODONE HYDROCHLORIDE
  8. BUPIVACAINE. [Suspect]
     Active Substance: BUPIVACAINE
     Dosage: 8.0905 MG/DAY
     Route: 037
     Dates: end: 20160316
  9. CLONIDINE. [Suspect]
     Active Substance: CLONIDINE
     Dosage: 62.51 MCG/DAY
     Route: 037
     Dates: start: 20160316
  10. BUPIVACAINE. [Suspect]
     Active Substance: BUPIVACAINE
     Dosage: 7.501 MG/DAY
     Route: 037
     Dates: start: 20160316

REACTIONS (3)
  - Pollakiuria [Unknown]
  - Dizziness [Unknown]
  - Vomiting [Unknown]

NARRATIVE: CASE EVENT DATE: 20160316
